FAERS Safety Report 21710200 (Version 2)
Quarter: 2022Q4

REPORT INFORMATION
  Report Type: Report from Study
  Country: PL (occurrence: PL)
  Receive Date: 20221211
  Receipt Date: 20221221
  Transmission Date: 20230112
  Serious: Yes (Life-Threatening, Hospitalization, Other)
  Sender: FDA-Public Use
  Company Number: PL-002147023-NVSC2022PL286721

PATIENT
  Age: 30 Year
  Sex: Male
  Weight: 79 kg

DRUGS (1)
  1. DICLOFENAC [Suspect]
     Active Substance: DICLOFENAC
     Indication: Eye abscess
     Dosage: 2 DOSAGE FORM, QD (DAILY)
     Route: 048
     Dates: start: 201806, end: 201901

REACTIONS (7)
  - Intestinal perforation [Recovered/Resolved with Sequelae]
  - Gastrointestinal haemorrhage [Recovered/Resolved]
  - Crohn^s disease [Unknown]
  - Oesophageal perforation [Recovered/Resolved]
  - Gastric perforation [Recovered/Resolved]
  - Oral disorder [Recovered/Resolved]
  - Off label use [Unknown]

NARRATIVE: CASE EVENT DATE: 20190101
